FAERS Safety Report 19301069 (Version 2)
Quarter: 2022Q2

REPORT INFORMATION
  Report Type: Spontaneous
  Country: US (occurrence: US)
  Receive Date: 20210524
  Receipt Date: 20220613
  Transmission Date: 20220721
  Serious: Yes (Other)
  Sender: FDA-Public Use
  Company Number: US-SA-SAC20210518001022

PATIENT
  Age: 41 Year
  Sex: Female

DRUGS (3)
  1. ZANTAC [Suspect]
     Active Substance: RANITIDINE HYDROCHLORIDE
     Indication: Abdominal discomfort
     Dosage: 75 MG, QD
     Route: 065
     Dates: start: 200001
  2. ZANTAC [Suspect]
     Active Substance: RANITIDINE HYDROCHLORIDE
     Indication: Dyspepsia
     Dosage: 150 MG, QD
     Route: 065
     Dates: end: 201901
  3. ZANTAC [Suspect]
     Active Substance: RANITIDINE HYDROCHLORIDE
     Indication: Gastric ulcer

REACTIONS (4)
  - Breast cancer stage IV [Unknown]
  - Uterine cancer [Unknown]
  - Gastric cancer [Unknown]
  - Uterine cancer [Unknown]

NARRATIVE: CASE EVENT DATE: 20000101
